FAERS Safety Report 7708543-X (Version None)
Quarter: 2011Q3

REPORT INFORMATION
  Report Type: 
  Country: None (occurrence: None)
  Receive Date: 20110825
  Receipt Date: 20110818
  Transmission Date: 20111222
  Serious: Yes (Other)
  Sender: FDA-Public Use
  Company Number: GB-ASTELLAS-2011EU005157

PATIENT
  Sex: Female
  Weight: 66 kg

DRUGS (1)
  1. VESICARE [Suspect]
     Indication: URGE INCONTINENCE
     Dosage: 5 MG, UID/QD
     Route: 048
     Dates: start: 20101110, end: 20110722

REACTIONS (3)
  - LETHARGY [None]
  - DRY EYE [None]
  - SOMNOLENCE [None]
